FAERS Safety Report 8398176-7 (Version None)
Quarter: 2012Q2

REPORT INFORMATION
  Report Type: 
  Country: None (occurrence: None)
  Receive Date: 20120531
  Receipt Date: 20120524
  Transmission Date: 20120825
  Serious: Yes (Hospitalization)
  Sender: FDA-Public Use
  Company Number: FR-SANOFI-AVENTIS-2011SA060456

PATIENT
  Age: 74 Year
  Sex: Male

DRUGS (9)
  1. NEXIUM [Concomitant]
  2. ALLOPURINOL [Concomitant]
     Dosage: STRENGTH: 200 MG
     Route: 048
     Dates: start: 20101008, end: 20101127
  3. KARDEGIC /FRA/ [Concomitant]
     Route: 048
  4. RIFATER [Suspect]
     Indication: TUBERCULOSIS
     Dosage: DOSE:5 UNIT(S)
     Route: 048
     Dates: start: 20101020, end: 20101127
  5. MYAMBUTOL [Concomitant]
     Indication: TUBERCULOSIS
     Route: 048
     Dates: start: 20101020, end: 20101127
  6. ESOMEPRAZOLE MAGNESIUM [Concomitant]
     Route: 048
  7. DESLORATADINE [Concomitant]
  8. HYDROCORTISONE [Concomitant]
  9. COLCHICINE [Concomitant]
     Route: 048
     Dates: start: 20101008, end: 20101127

REACTIONS (4)
  - MIXED LIVER INJURY [None]
  - RENAL FAILURE [None]
  - DRUG RASH WITH EOSINOPHILIA AND SYSTEMIC SYMPTOMS [None]
  - TOXIC SKIN ERUPTION [None]
